FAERS Safety Report 7753500-0 (Version None)
Quarter: 2011Q3

REPORT INFORMATION
  Report Type: 
  Country: None (occurrence: None)
  Receive Date: 20110915
  Receipt Date: 20110906
  Transmission Date: 20111222
  Serious: Yes (Death, Other)
  Sender: FDA-Public Use
  Company Number: US-PERRIGO-11US007360

PATIENT
  Sex: Female

DRUGS (6)
  1. ACETAMINOPHEN [Suspect]
     Dosage: UNK
     Route: 048
     Dates: start: 20110716, end: 20110716
  2. ACETAMINOPHEN [Suspect]
     Indication: PAIN IN EXTREMITY
     Dosage: UNK
     Route: 048
     Dates: start: 20110716, end: 20110716
  3. CHILDREN'S IBUPROFEN [Suspect]
     Indication: PAIN IN EXTREMITY
     Dosage: UNK
     Route: 048
     Dates: start: 20110716, end: 20110716
  4. IBUPROFEN [Suspect]
     Indication: PAIN IN EXTREMITY
     Dosage: UNK
     Route: 048
     Dates: start: 20110716, end: 20110716
  5. IBUPROFEN [Suspect]
     Dosage: UNK
     Route: 048
     Dates: start: 20110716, end: 20110716
  6. ACETAMINOPHEN [Suspect]
     Indication: PAIN IN EXTREMITY
     Dosage: UNK
     Route: 048
     Dates: start: 20110716, end: 20110716

REACTIONS (8)
  - GASTRIC MUCOSA ERYTHEMA [None]
  - DIARRHOEA [None]
  - ODYNOPHAGIA [None]
  - RESPIRATORY ARREST [None]
  - DYSPNOEA [None]
  - CYANOSIS [None]
  - COLD SWEAT [None]
  - PALPITATIONS [None]
